FAERS Safety Report 5736568-2 (Version None)
Quarter: 2008Q2

REPORT INFORMATION
  Report Type: 
  Country: None (occurrence: None)
  Receive Date: 20080506
  Receipt Date: 20070911
  Transmission Date: 20081010
  Serious: Yes (Death)
  Sender: FDA-Public Use
  Company Number: T200701086

PATIENT
  Age: 42 Year
  Sex: Female

DRUGS (2)
  1. METHADOSE [Suspect]
     Indication: PAIN
  2. CITALOPRAM HYDROBROMIDE [Suspect]

REACTIONS (1)
  - ACCIDENTAL OVERDOSE [None]
